FAERS Safety Report 11254586 (Version 1)
Quarter: 2015Q3

REPORT INFORMATION
  Report Type: Spontaneous
  Country: GB (occurrence: GB)
  Receive Date: 20150709
  Receipt Date: 20150709
  Transmission Date: 20151125
  Serious: Yes (Other)
  Sender: FDA-Public Use
  Company Number: GB-TEVA-576431ACC

PATIENT
  Age: 65 Year
  Sex: Female
  Weight: 84.2 kg

DRUGS (8)
  1. MIRTAZAPINE. [Suspect]
     Active Substance: MIRTAZAPINE
     Indication: DEPRESSION
     Route: 048
     Dates: start: 20150508, end: 20150517
  2. GAVISCON [Concomitant]
     Active Substance: ALUMINUM HYDROXIDE\MAGNESIUM CARBONATE
  3. PHENYTOIN. [Concomitant]
     Active Substance: PHENYTOIN
  4. MIRTAZAPINE. [Suspect]
     Active Substance: MIRTAZAPINE
     Indication: DEPRESSION
     Route: 048
     Dates: start: 20150518, end: 20150601
  5. OMEPRAZOLE. [Concomitant]
     Active Substance: OMEPRAZOLE
  6. SIMVASTATIN. [Concomitant]
     Active Substance: SIMVASTATIN
  7. CANESTEN HC [Concomitant]
  8. CLOPIDOGREL [Concomitant]
     Active Substance: CLOPIDOGREL BISULFATE

REACTIONS (4)
  - Agitation [Recovered/Resolved]
  - Suicidal ideation [Recovered/Resolved]
  - Depressive symptom [Recovered/Resolved]
  - Emotional distress [Recovered/Resolved]

NARRATIVE: CASE EVENT DATE: 20150518
